FAERS Safety Report 8780274 (Version 1)
Quarter: 2012Q4

REPORT INFORMATION
  Report Type: Spontaneous
  Country: US (occurrence: None)
  Receive Date: 20120905
  Receipt Date: 20120905
  Transmission Date: 20130627
  Serious: Yes (Life-Threatening, Hospitalization, Other)
  Sender: FDA-Public Use
  Company Number: None

PATIENT
  Age: 66 Year
  Sex: Male
  Weight: 104.33 kg

DRUGS (2)
  1. EFFIENT [Suspect]
     Indication: CORONARY STENT PLACEMENT
     Dosage: 1 daily mouth
     Route: 048
     Dates: start: 20120812
  2. EFFIENT [Suspect]
     Indication: CORONARY STENT PLACEMENT
     Dates: start: 20120803

REACTIONS (2)
  - Dizziness [None]
  - Blood pressure immeasurable [None]
